FAERS Safety Report 19013843 (Version 1)
Quarter: 2021Q1

REPORT INFORMATION
  Report Type: Spontaneous
  Country: IN (occurrence: IN)
  Receive Date: 20210316
  Receipt Date: 20210316
  Transmission Date: 20210420
  Serious: Yes (Life-Threatening, Hospitalization)
  Sender: FDA-Public Use
  Company Number: IN-STRIDES ARCOLAB LIMITED-2021SP003083

PATIENT
  Age: 47 Year
  Sex: Male

DRUGS (2)
  1. IBUPROFEN. [Suspect]
     Active Substance: IBUPROFEN
     Indication: POLYARTHRITIS
     Dosage: UNK
     Route: 065
  2. PREDNISOLONE. [Suspect]
     Active Substance: PREDNISOLONE
     Indication: POLYARTHRITIS
     Dosage: 5 MILLIGRAM, TABLETS
     Route: 065

REACTIONS (5)
  - Mast cell activation syndrome [Unknown]
  - Haematemesis [Unknown]
  - Nephropathy [Recovered/Resolved]
  - Melaena [Unknown]
  - Synovitis [Unknown]

NARRATIVE: CASE EVENT DATE: 2019
